FAERS Safety Report 5935067-2 (Version None)
Quarter: 2008Q4

REPORT INFORMATION
  Report Type: 
  Country: None (occurrence: None)
  Receive Date: 20081030
  Receipt Date: 20081027
  Transmission Date: 20090506
  Serious: Yes (Hospitalization)
  Sender: FDA-Public Use
  Company Number: FR-WYE-G02436308

PATIENT
  Sex: Male
  Weight: 15.3 kg

DRUGS (2)
  1. ADVIL [Suspect]
     Indication: MUMPS
     Dosage: UNKNOWN
     Route: 048
     Dates: start: 20080422
  2. DOLIPRANE [Concomitant]
     Indication: MUMPS
     Dosage: UNKNOWN
     Route: 048
     Dates: start: 20080422

REACTIONS (11)
  - CONDITION AGGRAVATED [None]
  - FEEDING DISORDER [None]
  - HAEMOGLOBIN DECREASED [None]
  - INFECTION [None]
  - INFLAMMATION [None]
  - LYMPHADENITIS [None]
  - NEUTROPHIL COUNT INCREASED [None]
  - PHARYNGEAL ABSCESS [None]
  - PLATELET COUNT INCREASED [None]
  - TRISMUS [None]
  - WHITE BLOOD CELL COUNT INCREASED [None]
